FAERS Safety Report 6387799-2 (Version None)
Quarter: 2009Q4

REPORT INFORMATION
  Report Type: 
  Country: None (occurrence: None)
  Receive Date: 20091005
  Receipt Date: 20090930
  Transmission Date: 20100525
  Serious: Yes (Hospitalization, Other)
  Sender: FDA-Public Use
  Company Number: TN-ROXANE LABORATORIES, INC.-2009-RO-01019RO

PATIENT
  Age: 42 Year
  Sex: Female

DRUGS (3)
  1. PREDNISONE [Suspect]
     Indication: RHEUMATOID ARTHRITIS
     Dosage: 10 MG
  2. METHOTREXATE [Suspect]
     Indication: RHEUMATOID ARTHRITIS
  3. GLUCANTIME [Concomitant]
     Indication: CUTANEOUS LEISHMANIASIS

REACTIONS (2)
  - CUTANEOUS LEISHMANIASIS [None]
  - DISEASE RECURRENCE [None]
